FAERS Safety Report 6770187-4 (Version None)
Quarter: 2010Q2

REPORT INFORMATION
  Report Type: 
  Country: None (occurrence: None)
  Receive Date: 20100615
  Receipt Date: 20100610
  Transmission Date: 20101027
  Serious: Yes (Disabling)
  Sender: FDA-Public Use
  Company Number: JP-MERCK-1004USA03817

PATIENT
  Age: 65 Year
  Sex: Female
  Weight: 63 kg

DRUGS (5)
  1. JANUVIA [Suspect]
     Indication: DIABETES MELLITUS
     Route: 048
     Dates: start: 20100203
  2. AMARYL [Suspect]
     Indication: DIABETES MELLITUS
     Route: 048
     Dates: start: 20070126, end: 20070621
  3. AMARYL [Suspect]
     Route: 048
     Dates: start: 20070622, end: 20100427
  4. AMARYL [Suspect]
     Route: 048
     Dates: start: 20100428
  5. MICARDIS [Suspect]
     Indication: HYPERTENSION
     Route: 048
     Dates: start: 20100203

REACTIONS (4)
  - GLYCOSYLATED HAEMOGLOBIN DECREASED [None]
  - HYPOGLYCAEMIA [None]
  - HYPOTENSION [None]
  - LOSS OF CONSCIOUSNESS [None]
